FAERS Safety Report 17448597 (Version 2)
Quarter: 2020Q2

REPORT INFORMATION
  Report Type: Report from Study
  Country: None (occurrence: ES)
  Receive Date: 20200224
  Receipt Date: 20200525
  Transmission Date: 20200713
  Serious: Yes (Other)
  Sender: FDA-Public Use
  Company Number: ES-ABBVIE-20K-144-3285758-00

PATIENT
  Age: 60 Year
  Sex: Female
  Weight: 64 kg

DRUGS (1)
  1. DUODOPA [Suspect]
     Active Substance: CARBIDOPA\LEVODOPA
     Indication: PARKINSON^S DISEASE
     Route: 050
     Dates: start: 20191128

REACTIONS (8)
  - General physical health deterioration [Not Recovered/Not Resolved]
  - Hallucination [Not Recovered/Not Resolved]
  - Speech disorder [Unknown]
  - Dyskinesia [Unknown]
  - Insomnia [Unknown]
  - Incontinence [Not Recovered/Not Resolved]
  - Anaemia [Not Recovered/Not Resolved]
  - Mobility decreased [Not Recovered/Not Resolved]

NARRATIVE: CASE EVENT DATE: 2020
